FAERS Safety Report 5871623-8 (Version None)
Quarter: 2008Q3

REPORT INFORMATION
  Report Type: 
  Country: None (occurrence: None)
  Receive Date: 20080904
  Receipt Date: 20080904
  Transmission Date: 20090109
  Serious: Yes (Disabling)
  Sender: FDA-Public Use
  Company Number: None

PATIENT
  Sex: Female
  Weight: 97.5234 kg

DRUGS (2)
  1. ABILIFY [Suspect]
  2. LINCARE SLEEP APNEA MACHINE [Concomitant]

REACTIONS (2)
  - JOINT STIFFNESS [None]
  - MUSCULOSKELETAL STIFFNESS [None]
